FAERS Safety Report 6221939-0 (Version None)
Quarter: 2009Q2

REPORT INFORMATION
  Report Type: 
  Country: None (occurrence: None)
  Receive Date: 20090609
  Receipt Date: 20090609
  Transmission Date: 20091009
  Serious: Yes (Hospitalization)
  Sender: FDA-Public Use
  Company Number: None

PATIENT
  Sex: Male
  Weight: 62.7 kg

DRUGS (9)
  1. CELECOXIB [Suspect]
     Indication: NON-SMALL CELL LUNG CANCER METASTATIC
     Dosage: 600MG BID ORAL
     Route: 048
     Dates: start: 20090513, end: 20090526
  2. PREDNISONE [Concomitant]
  3. NEURONTIN [Concomitant]
  4. FLUDORCORTISONE [Concomitant]
  5. NEXIUM [Concomitant]
  6. ALPRAZOLAM [Concomitant]
  7. MEGACE [Concomitant]
  8. FENTANYL [Concomitant]
  9. AFLUZOSIN [Concomitant]

REACTIONS (3)
  - MALIGNANT NEOPLASM PROGRESSION [None]
  - NON-SMALL CELL LUNG CANCER RECURRENT [None]
  - PNEUMOPERITONEUM [None]
